FAERS Safety Report 12287962 (Version 1)
Quarter: 2016Q2

REPORT INFORMATION
  Report Type: Spontaneous
  Country: US (occurrence: US)
  Receive Date: 20160420
  Receipt Date: 20160420
  Transmission Date: 20160815
  Serious: No
  Sender: FDA-Public Use
  Company Number: US-ACTELION PHARMACEUTICALS US, INC.-A-NJ2016-134896

PATIENT
  Age: 63 Year
  Sex: Female

DRUGS (12)
  1. SILDENAFIL. [Concomitant]
     Active Substance: SILDENAFIL
  2. LISINOPRIL. [Concomitant]
     Active Substance: LISINOPRIL
  3. COUMADIN [Concomitant]
     Active Substance: WARFARIN SODIUM
  4. CALCIUM [Concomitant]
     Active Substance: CALCIUM
  5. MAGNESIUM [Concomitant]
     Active Substance: MAGNESIUM
  6. OPSUMIT [Suspect]
     Active Substance: MACITENTAN
     Indication: PULMONARY ARTERIAL HYPERTENSION
     Dosage: 10 MG, QD
     Route: 048
  7. LIPITOR [Concomitant]
     Active Substance: ATORVASTATIN CALCIUM
  8. PROZAC [Concomitant]
     Active Substance: FLUOXETINE HYDROCHLORIDE
  9. KLONOPIN [Concomitant]
     Active Substance: CLONAZEPAM
  10. TYLENOL WITH CODEINE [Concomitant]
     Active Substance: ACETAMINOPHEN\CODEINE PHOSPHATE
  11. ZINC [Concomitant]
     Active Substance: ZINC\ZINC CHLORIDE
  12. TORSEMIDE. [Concomitant]
     Active Substance: TORSEMIDE

REACTIONS (2)
  - Depression [Not Recovered/Not Resolved]
  - Irritability [Not Recovered/Not Resolved]
